FAERS Safety Report 7793393-9 (Version None)
Quarter: 2011Q4

REPORT INFORMATION
  Report Type: 
  Country: None (occurrence: None)
  Receive Date: 20111003
  Receipt Date: 20110609
  Transmission Date: 20120403
  Serious: No
  Sender: FDA-Public Use
  Company Number: US-BAYER-2011-050436

PATIENT
  Age: 69 Year
  Sex: Female

DRUGS (1)
  1. AVELOX [Suspect]
     Dosage: 400 MG, QD
     Route: 048
     Dates: start: 20110601

REACTIONS (5)
  - VERTIGO [None]
  - DIZZINESS [None]
  - VOMITING [None]
  - MUSCULAR WEAKNESS [None]
  - TREMOR [None]
